FAERS Safety Report 24721627 (Version 1)
Quarter: 2024Q4

REPORT INFORMATION
  Report Type: Spontaneous
  Country: US (occurrence: None)
  Receive Date: 20241211
  Receipt Date: 20241211
  Transmission Date: 20250115
  Serious: Yes (Hospitalization)
  Sender: Public
  Company Number: None

PATIENT
  Age: 30 Year
  Sex: Female

DRUGS (1)
  1. TEMOZOLOMIDE [Suspect]
     Active Substance: TEMOZOLOMIDE
     Indication: Malignant pituitary tumour
     Dosage: OTHER FREQUENCY : EVERYEVENINGFOR5CONSECUTIVEDAYSEVERY28DAYS ;?FREQUENCY =TAKE 3 CAPSULE, BY MOUTH E
     Route: 048
     Dates: start: 202404

REACTIONS (1)
  - Seizure [None]

NARRATIVE: CASE EVENT DATE: 20241101
